FAERS Safety Report 8242188-0 (Version None)
Quarter: 2012Q1

REPORT INFORMATION
  Report Type: 
  Country: None (occurrence: None)
  Receive Date: 20120329
  Receipt Date: 20120315
  Transmission Date: 20120608
  Serious: Yes (Hospitalization)
  Sender: FDA-Public Use
  Company Number: PL-AMGEN-POLSP2012018058

PATIENT
  Age: 53 Year
  Sex: Male

DRUGS (4)
  1. METHOTREXATE [Concomitant]
     Dosage: 25 MG, UNK
     Route: 048
     Dates: start: 20101001
  2. SULFASALAZINE [Concomitant]
     Dosage: 2.0 G, UNK
     Route: 048
     Dates: start: 20070101
  3. ETANERCEPT [Suspect]
     Indication: RHEUMATOID ARTHRITIS
     Dosage: 50 MG, UNK
     Route: 058
     Dates: start: 20120202, end: 20120216
  4. METYPRED                           /00049601/ [Concomitant]
     Dosage: 8 MG, UNK
     Route: 048
     Dates: start: 20090101

REACTIONS (3)
  - RASH PRURITIC [None]
  - INJECTION SITE OEDEMA [None]
  - INFLAMMATORY MARKER INCREASED [None]
